FAERS Safety Report 8183284-6 (Version None)
Quarter: 2012Q1

REPORT INFORMATION
  Report Type: 
  Country: None (occurrence: None)
  Receive Date: 20120201
  Receipt Date: 20110328
  Transmission Date: 20120608
  Serious: Yes (Other)
  Sender: FDA-Public Use
  Company Number: 274240USA

PATIENT
  Sex: Male

DRUGS (2)
  1. PROPOXYPHENE NAPSYLATE AND ACETAMINOPHEN [Suspect]
  2. PROPACET 100 [Suspect]

REACTIONS (1)
  - MYOCARDIAL INFARCTION [None]
